FAERS Safety Report 13907526 (Version 1)
Quarter: 2017Q3

REPORT INFORMATION
  Report Type: Spontaneous
  Country: US (occurrence: US)
  Receive Date: 20170825
  Receipt Date: 20170825
  Transmission Date: 20171127
  Serious: No
  Sender: FDA-Public Use
  Company Number: US-ROCHE-1109842

PATIENT
  Sex: Male
  Weight: 11.7 kg

DRUGS (2)
  1. NUTROPIN [Suspect]
     Active Substance: SOMATROPIN
     Indication: GROWTH HORMONE DEFICIENCY
  2. NUTROPIN [Suspect]
     Active Substance: SOMATROPIN
     Indication: NEOPLASM MALIGNANT
     Dosage: DILUTED TO 2 ML
     Route: 058
     Dates: start: 196610

REACTIONS (2)
  - Tremor [Unknown]
  - Arthralgia [Unknown]
